FAERS Safety Report 5822579-5 (Version None)
Quarter: 2008Q3

REPORT INFORMATION
  Report Type: 
  Country: None (occurrence: None)
  Receive Date: 20080725
  Receipt Date: 20080715
  Transmission Date: 20090109
  Serious: Yes (Hospitalization)
  Sender: FDA-Public Use
  Company Number: FR-JNJFOC-20080703601

PATIENT
  Sex: Female
  Weight: 59 kg

DRUGS (8)
  1. PREZISTA [Suspect]
     Indication: HIV INFECTION
     Route: 048
  2. NORVIR [Suspect]
     Indication: HIV INFECTION
     Route: 048
  3. SERETIDE [Interacting]
     Indication: ASTHMA
     Route: 055
  4. TRUVADA [Concomitant]
     Indication: HIV INFECTION
  5. VIRAMUNE [Concomitant]
     Indication: HIV INFECTION
  6. ISENTRESS [Concomitant]
     Indication: HIV INFECTION
  7. KIVEXA [Concomitant]
     Indication: HIV INFECTION
  8. LANTUS [Concomitant]
     Indication: DIABETES MELLITUS

REACTIONS (4)
  - ADRENAL INSUFFICIENCY [None]
  - DIABETES MELLITUS [None]
  - DRUG INTERACTION [None]
  - PROTEINURIA [None]
